FAERS Safety Report 21560367 (Version 1)
Quarter: 2022Q4

REPORT INFORMATION
  Report Type: Report from Study
  Country: US (occurrence: US)
  Receive Date: 20221107
  Receipt Date: 20221107
  Transmission Date: 20230112
  Serious: Yes (Other)
  Sender: FDA-Public Use
  Company Number: US-ABBVIE-4187839

PATIENT
  Age: 53 Year
  Sex: Female

DRUGS (2)
  1. HUMIRA [Suspect]
     Active Substance: ADALIMUMAB
     Indication: Psoriasis
     Dosage: FORM STRENGTH 40 MILLIGRAM
     Route: 058
  2. HUMIRA [Suspect]
     Active Substance: ADALIMUMAB
     Indication: Psoriatic arthropathy

REACTIONS (9)
  - Syncope [Recovered/Resolved]
  - Anaemia [Recovered/Resolved]
  - Oropharyngeal pain [Unknown]
  - General symptom [Unknown]
  - Mobility decreased [Recovered/Resolved]
  - Dizziness [Recovered/Resolved]
  - Vaccination site pain [Unknown]
  - Vaccination site erythema [Unknown]
  - Vaccination site swelling [Unknown]

NARRATIVE: CASE EVENT DATE: 20221019
